FAERS Safety Report 25082209 (Version 1)
Quarter: 2025Q1

REPORT INFORMATION
  Report Type: Spontaneous
  Country: CN (occurrence: CN)
  Receive Date: 20250317
  Receipt Date: 20250317
  Transmission Date: 20250408
  Serious: Yes (Death, Other)
  Sender: DR REDDYS
  Company Number: CN-CHN-CHN/2025/03/003994

PATIENT
  Age: 51 Year
  Sex: Male

DRUGS (4)
  1. DOXORUBICIN [Suspect]
     Active Substance: DOXORUBICIN
     Indication: Dedifferentiated liposarcoma
  2. IFOSFAMIDE [Suspect]
     Active Substance: IFOSFAMIDE
     Indication: Dedifferentiated liposarcoma
  3. PEGFILGRASTIM [Suspect]
     Active Substance: PEGFILGRASTIM
     Indication: Dedifferentiated liposarcoma
  4. MESNA [Suspect]
     Active Substance: MESNA
     Indication: Dedifferentiated liposarcoma

REACTIONS (2)
  - Metastases to chest wall [Fatal]
  - Drug ineffective for unapproved indication [Fatal]
